FAERS Safety Report 25716532 (Version 1)
Quarter: 2025Q3

REPORT INFORMATION
  Report Type: Spontaneous
  Country: EU (occurrence: EU)
  Receive Date: 20250822
  Receipt Date: 20250822
  Transmission Date: 20251021
  Serious: Yes (Other)
  Sender: DR REDDYS
  Company Number: None

PATIENT
  Age: 12 Year
  Sex: Male

DRUGS (2)
  1. PREGABALIN [Suspect]
     Active Substance: PREGABALIN
     Indication: Product used for unknown indication
     Route: 048
  2. PREGABALIN [Suspect]
     Active Substance: PREGABALIN
     Route: 065

REACTIONS (4)
  - Mydriasis [Unknown]
  - Accidental exposure to product [Unknown]
  - Toxicity to various agents [Unknown]
  - Accidental overdose [Unknown]
